FAERS Safety Report 24646528 (Version 1)
Quarter: 2024Q4

REPORT INFORMATION
  Report Type: Spontaneous
  Country: US (occurrence: None)
  Receive Date: 20241120
  Receipt Date: 20241120
  Transmission Date: 20250115
  Serious: No
  Sender: Public
  Company Number: None

PATIENT
  Age: 68 Year
  Sex: Female

DRUGS (5)
  1. CAPECITABINE [Suspect]
     Active Substance: CAPECITABINE
     Indication: Neoplasm malignant
     Dosage: 1500MG BID ORAL?
     Route: 048
     Dates: start: 20240918
  2. AMLODIPINE BESYLATE [Concomitant]
  3. METOPROLOL ER SUCCINATE [Concomitant]
  4. ZARXIO [Concomitant]
  5. XELODA [Concomitant]
     Active Substance: CAPECITABINE

REACTIONS (1)
  - Palmar-plantar erythrodysaesthesia syndrome [None]

NARRATIVE: CASE EVENT DATE: 20241001
